FAERS Safety Report 6601763-7 (Version None)
Quarter: 2010Q1

REPORT INFORMATION
  Report Type: 
  Country: None (occurrence: None)
  Receive Date: 20100225
  Receipt Date: 20081212
  Transmission Date: 20100710
  Serious: No
  Sender: FDA-Public Use
  Company Number: US-BRISTOL-MYERS SQUIBB COMPANY-14442180

PATIENT
  Age: 62 Year
  Sex: Female
  Weight: 61 kg

DRUGS (14)
  1. ORENCIA [Suspect]
     Indication: RHEUMATOID ARTHRITIS
     Dosage: NO. OF DOSES: 4
     Route: 042
     Dates: start: 20080915
  2. INDERAL [Concomitant]
  3. HYDROCHLOROTHIAZIDE [Concomitant]
  4. SPIRONOLACTONE [Concomitant]
  5. K-DUR [Concomitant]
  6. CALCIUM [Concomitant]
  7. METHOTREXATE [Concomitant]
  8. FOLIC ACID [Concomitant]
  9. FOSAMAX [Concomitant]
  10. MULTI-VITAMIN [Concomitant]
  11. LISINOPRIL [Concomitant]
  12. FISH OIL [Concomitant]
  13. VITAMIN C [Concomitant]
  14. VALTREX [Concomitant]

REACTIONS (6)
  - DIARRHOEA [None]
  - DIZZINESS [None]
  - DRUG INEFFECTIVE [None]
  - FATIGUE [None]
  - FLANK PAIN [None]
  - NAUSEA [None]
